FAERS Safety Report 21634883 (Version 1)
Quarter: 2022Q4

REPORT INFORMATION
  Report Type: Spontaneous
  Country: JP (occurrence: JP)
  Receive Date: 20221123
  Receipt Date: 20221123
  Transmission Date: 20230112
  Serious: Yes (Life-Threatening, Hospitalization)
  Sender: FDA-Public Use
  Company Number: JP-STERISCIENCE B.V.-2022-ST-000038

PATIENT
  Age: 87 Year
  Sex: Male

DRUGS (6)
  1. GANCICLOVIR SODIUM [Suspect]
     Active Substance: GANCICLOVIR SODIUM
     Indication: Cytomegalovirus infection
     Dosage: UNKNOWN
  2. GANCICLOVIR SODIUM [Suspect]
     Active Substance: GANCICLOVIR SODIUM
     Indication: Skin erosion
  3. VONOPRAZAN [Suspect]
     Active Substance: VONOPRAZAN
     Indication: Gastric ulcer
     Dosage: UNKNOWN
     Route: 065
  4. PREDNISOLONE [Suspect]
     Active Substance: PREDNISOLONE
     Indication: Pemphigoid
     Dosage: 50 MILLIGRAM
     Route: 065
  5. PREDNISOLONE [Suspect]
     Active Substance: PREDNISOLONE
     Dosage: 45 MILLIGRAM
     Route: 065
  6. PREDNISOLONE [Suspect]
     Active Substance: PREDNISOLONE
     Dosage: 5 MILLIGRAM
     Route: 065

REACTIONS (1)
  - Drug ineffective [Unknown]
